FAERS Safety Report 7028360 (Version 2)
Quarter: 2013Q3

REPORT INFORMATION
  Report Type: Spontaneous
  Country: US (occurrence: US)
  Receive Date: 20090619
  Receipt Date: 20130916
  Transmission Date: 20140515
  Serious: No
  Sender: FDA-Public Use
  Company Number: US-ASTRAZENECA-2009UW08518

PATIENT
  Age: 78 Year
  Sex: Male
  Weight: 90.7 kg

DRUGS (13)
  1. SYMBICORT [Suspect]
     Dosage: 160/4.5 MCG 2 PUFFS BID
     Route: 055
     Dates: start: 20090306
  2. BRILINTA [Suspect]
     Indication: ACUTE CORONARY SYNDROME
     Dosage: UNKNOWN DOSE DAILY
     Route: 048
     Dates: start: 20130821
  3. ASPIRIN [Concomitant]
     Route: 048
  4. FISH OIL [Concomitant]
     Route: 048
  5. CALCIUM W/ VIT D [Concomitant]
     Route: 048
  6. NORVASC [Concomitant]
     Route: 048
  7. MVI [Concomitant]
     Dosage: UNKNOWN DOSE DAILY
     Route: 048
  8. GLUCOSAMINE [Concomitant]
     Dosage: UNKNOWN DOSE TWO TIMES A DAY
     Route: 048
  9. PRILOSEC [Concomitant]
     Route: 048
  10. PAXIL [Concomitant]
     Indication: DEPRESSION
     Route: 048
  11. VITAMIN C [Concomitant]
     Route: 048
  12. HYTRIN [Concomitant]
     Route: 048
  13. ZOCOR [Concomitant]
     Route: 048

REACTIONS (6)
  - Dyspnoea [Unknown]
  - Pulmonary mass [Unknown]
  - Implant site haemorrhage [Recovered/Resolved]
  - Cough [Unknown]
  - Dysphonia [Unknown]
  - Oropharyngeal pain [Unknown]
